FAERS Safety Report 4268050-6 (Version None)
Quarter: 2004Q1

REPORT INFORMATION
  Report Type: 
  Country: None (occurrence: None)
  Receive Date: 20040109
  Receipt Date: 20040109
  Transmission Date: 20041129
  Serious: Yes (Other)
  Sender: FDA-Public Use
  Company Number: None

PATIENT
  Sex: Male
  Weight: 55.3388 kg

DRUGS (7)
  1. PHENYTOIN SODIUM CAP [Suspect]
     Indication: PETIT MAL EPILEPSY
     Dosage: 200 MG HS ORAL
     Route: 048
     Dates: start: 20010723, end: 20040108
  2. FOLIC ACID [Concomitant]
  3. GATIFLOXACIN [Concomitant]
  4. GENTAMICIN SULFATE [Concomitant]
  5. LOVASTATIN [Concomitant]
  6. RABEPRAZOLE NA [Concomitant]
  7. TERAZOSIN HCL [Concomitant]

REACTIONS (4)
  - DEMENTIA [None]
  - DIFFICULTY IN WALKING [None]
  - DRUG TOXICITY [None]
  - SINUS BRADYCARDIA [None]
